FAERS Safety Report 11220910 (Version 1)
Quarter: 2015Q2

REPORT INFORMATION
  Report Type: Spontaneous
  Country: US (occurrence: None)
  Receive Date: 20150625
  Receipt Date: 20150625
  Transmission Date: 20150821
  Serious: Yes (Hospitalization)
  Sender: FDA-Public Use
  Company Number: None

PATIENT
  Age: 17 Year
  Sex: Male

DRUGS (1)
  1. LUPRON DEPOT [Suspect]
     Active Substance: LEUPROLIDE ACETATE
     Dosage: 15 MG, EVERY 25 TO 28 DAYS
     Route: 030
     Dates: start: 20150331, end: 20150430

REACTIONS (3)
  - Mood altered [None]
  - Priapism [None]
  - Depression [None]

NARRATIVE: CASE EVENT DATE: 201505
